FAERS Safety Report 18541447 (Version 5)
Quarter: 2021Q2

REPORT INFORMATION
  Report Type: Spontaneous
  Country: US (occurrence: US)
  Receive Date: 20201124
  Receipt Date: 20210514
  Transmission Date: 20210717
  Serious: Yes (Hospitalization)
  Sender: FDA-Public Use
  Company Number: US-TEVA-2020-US-1852345

PATIENT
  Age: 42 Year
  Sex: Female

DRUGS (3)
  1. TREPROSTINIL MDV TEVA [Suspect]
     Active Substance: TREPROSTINIL
     Route: 042
     Dates: start: 20200924
  2. TREPROSTINIL MDV TEVA [Suspect]
     Active Substance: TREPROSTINIL
     Indication: PULMONARY ARTERIAL HYPERTENSION
     Dosage: 48 NG/KG/MIN, CONTINUOUS
     Route: 042
     Dates: start: 20200911
  3. TREPROSTINIL MDV TEVA [Suspect]
     Active Substance: TREPROSTINIL
     Dosage: 50 NG/KG/MIN
     Route: 042
     Dates: start: 20201007

REACTIONS (5)
  - Tachycardia [Unknown]
  - Cough [Unknown]
  - Lung disorder [Unknown]
  - Fluid overload [Unknown]
  - Bone pain [Unknown]

NARRATIVE: CASE EVENT DATE: 20201108
